FAERS Safety Report 10143487 (Version 1)
Quarter: 2014Q2

REPORT INFORMATION
  Report Type: Spontaneous
  Country: US (occurrence: US)
  Receive Date: 20140430
  Receipt Date: 20140430
  Transmission Date: 20141212
  Serious: No
  Sender: FDA-Public Use
  Company Number: US-PFIZER INC-2014115454

PATIENT
  Sex: Male

DRUGS (5)
  1. PROTONIX [Suspect]
     Dosage: 40 MG, UNK
  2. TORASEMIDE [Suspect]
     Dosage: 40 MG, UNK
  3. TIZANIDINE [Suspect]
     Dosage: 4 MG, UNK
  4. MS CONTIN [Suspect]
     Dosage: 30 MG, UNK
  5. PERCOCET [Suspect]
     Dosage: OXYCODONE HYDROCHLORIDE 10 MG/ PARACETAMOL 325 MG, UNK

REACTIONS (1)
  - Drug hypersensitivity [Unknown]
